FAERS Safety Report 5374116-X (Version None)
Quarter: 2007Q2

REPORT INFORMATION
  Report Type: 
  Country: None (occurrence: None)
  Receive Date: 20070627
  Receipt Date: 20070611
  Transmission Date: 20071010
  Serious: Yes (Other)
  Sender: FDA-Public Use
  Company Number: SPV1-2007-01548

PATIENT
  Age: 71 Year
  Sex: Female

DRUGS (2)
  1. XAGRID(ANAGRELIDE HYDROCHLORIDE) CAPSULE [Suspect]
     Dosage: 2.5 MG, OTHER, ORAL
     Route: 048
     Dates: end: 20070417
  2. ASPIRIN [Concomitant]

REACTIONS (1)
  - COLITIS [None]
